FAERS Safety Report 6077089-X (Version None)
Quarter: 2009Q1

REPORT INFORMATION
  Report Type: 
  Country: None (occurrence: None)
  Receive Date: 20090213
  Receipt Date: 20090203
  Transmission Date: 20090719
  Serious: Yes (Other)
  Sender: FDA-Public Use
  Company Number: PHHY2009DE02145

PATIENT
  Sex: Female
  Weight: 53 kg

DRUGS (6)
  1. VOLTAREN [Suspect]
     Indication: MUSCULOSKELETAL PAIN
     Dosage: 25 MG, ONCE/SINGLE
     Route: 048
     Dates: start: 20081201, end: 20090101
  2. METOCLOPRAMID [Suspect]
     Route: 048
  3. NORMOC [Concomitant]
     Dosage: 2 TABS
     Route: 048
  4. METOCLOPRAMIDE HYDROCHLORIDE [Concomitant]
  5. NEXIUM [Concomitant]
     Dosage: 4.0
     Route: 048
  6. CONCOR [Concomitant]
     Dosage: 2.5
     Route: 048

REACTIONS (8)
  - ABDOMINAL PAIN UPPER [None]
  - FACIAL NEURALGIA [None]
  - GAIT DISTURBANCE [None]
  - GASTRIC MUCOSAL LESION [None]
  - MOVEMENT DISORDER [None]
  - NAUSEA [None]
  - NERVOUS SYSTEM DISORDER [None]
  - POLYNEUROPATHY [None]
